FAERS Safety Report 26002878 (Version 1)
Quarter: 2025Q4

REPORT INFORMATION
  Report Type: Spontaneous
  Country: US (occurrence: US)
  Receive Date: 20251106
  Receipt Date: 20251106
  Transmission Date: 20260118
  Serious: No
  Sender: CELLTRION
  Company Number: US-CELLTRION INC.-2025US028618

PATIENT

DRUGS (1)
  1. ZYMFENTRA [Suspect]
     Active Substance: INFLIXIMAB-DYYB
     Indication: Crohn^s disease
     Dosage: INJECT THE CONTENTS OF ONE DEVICE UNDER THE SKIN EVERY TWO WEEKS/ 120 MG/ML PEN KI/ 120 MG INJECTION
     Route: 058

REACTIONS (1)
  - Rhinitis [Unknown]

NARRATIVE: CASE EVENT DATE: 20250802
